FAERS Safety Report 13918647 (Version 1)
Quarter: 2017Q3

REPORT INFORMATION
  Report Type: Spontaneous
  Country: US (occurrence: None)
  Receive Date: 20170828
  Receipt Date: 20170828
  Transmission Date: 20171127
  Serious: No
  Sender: FDA-Public Use
  Company Number: None

PATIENT
  Sex: Female
  Weight: 134.27 kg

DRUGS (2)
  1. XELJANZ XR [Suspect]
     Active Substance: TOFACITINIB CITRATE
     Indication: RHEUMATOID ARTHRITIS
     Route: 048
  2. RASUVO [Suspect]
     Active Substance: METHOTREXATE SODIUM
     Route: 058

REACTIONS (3)
  - Cellulitis [None]
  - Infection [None]
  - Staphylococcal infection [None]
